FAERS Safety Report 10182318 (Version 1)
Quarter: 2014Q2

REPORT INFORMATION
  Report Type: Spontaneous
  Country: ES (occurrence: ES)
  Receive Date: 20140520
  Receipt Date: 20140520
  Transmission Date: 20141212
  Serious: Yes (Other)
  Sender: FDA-Public Use
  Company Number: ES-ORION CORPORATION ORION PHARMA-ENTC2014-0169

PATIENT
  Age: 60 Year
  Sex: Male

DRUGS (2)
  1. STALEVO [Suspect]
     Indication: PARKINSON^S DISEASE
     Route: 048
     Dates: start: 200807, end: 20130111
  2. MIRAPEXIN [Suspect]
     Indication: PARKINSON^S DISEASE
     Route: 048
     Dates: start: 200811, end: 201312

REACTIONS (1)
  - Pathological gambling [Recovering/Resolving]
